FAERS Safety Report 17811499 (Version 1)
Quarter: 2020Q2

REPORT INFORMATION
  Report Type: Spontaneous
  Country: US (occurrence: US)
  Receive Date: 20200520
  Receipt Date: 20200520
  Transmission Date: 20200714
  Serious: Yes (Hospitalization)
  Sender: FDA-Public Use
  Company Number: None

PATIENT
  Sex: Male

DRUGS (16)
  1. NOVOLOG [Concomitant]
     Active Substance: INSULIN ASPART
  2. VASCEPA [Concomitant]
     Active Substance: ICOSAPENT ETHYL
  3. CLOPIDOGREL [Concomitant]
     Active Substance: CLOPIDOGREL BISULFATE
  4. PANTOPRAZOLE [Concomitant]
     Active Substance: PANTOPRAZOLE
  5. DOXYCYC MONO [Concomitant]
     Active Substance: DOXYCYCLINE
  6. FUROSEMIDE. [Concomitant]
     Active Substance: FUROSEMIDE
  7. POT CL MICRO [Concomitant]
  8. TRULICITY [Concomitant]
     Active Substance: DULAGLUTIDE
  9. ENTRESTO [Concomitant]
     Active Substance: SACUBITRIL\VALSARTAN
  10. ELIQUIS [Concomitant]
     Active Substance: APIXABAN
  11. BASAGLAR [Concomitant]
     Active Substance: INSULIN GLARGINE
  12. REPATHA [Suspect]
     Active Substance: EVOLOCUMAB
     Indication: ARTERIOSCLEROSIS
     Dosage: OTHER FREQUENCY:Q14D;?
     Route: 058
     Dates: start: 20190822
  13. ISOSORB MONO [Concomitant]
     Active Substance: ISOSORBIDE MONONITRATE
  14. JARDIANCE [Concomitant]
     Active Substance: EMPAGLIFLOZIN
  15. CARVEDIOLO [Concomitant]
  16. CORLANOR [Concomitant]
     Active Substance: IVABRADINE HYDROCHLORIDE

REACTIONS (1)
  - Infection [None]
